FAERS Safety Report 17788508 (Version 1)
Quarter: 2020Q2

REPORT INFORMATION
  Report Type: Report from Study
  Country: None (occurrence: CO)
  Receive Date: 20200515
  Receipt Date: 20200515
  Transmission Date: 20200714
  Serious: Yes (Hospitalization)
  Sender: FDA-Public Use
  Company Number: CO-ABBVIE-20K-036-3403991-00

PATIENT
  Sex: Female
  Weight: 56 kg

DRUGS (2)
  1. HUMIRA [Suspect]
     Active Substance: ADALIMUMAB
     Indication: PSORIASIS
     Route: 058
     Dates: end: 202004
  2. HUMIRA [Suspect]
     Active Substance: ADALIMUMAB
     Indication: PSORIASIS
     Route: 058
     Dates: start: 20141002

REACTIONS (5)
  - Hysterectomy [Recovering/Resolving]
  - Uterine mass [Recovering/Resolving]
  - Computerised tomogram abdomen abnormal [Unknown]
  - X-ray abnormal [Unknown]
  - Ultrasound scan abnormal [Unknown]

NARRATIVE: CASE EVENT DATE: 2020
